FAERS Safety Report 4742580-2 (Version None)
Quarter: 2005Q3

REPORT INFORMATION
  Report Type: 
  Country: None (occurrence: None)
  Receive Date: 20050811
  Receipt Date: 20050714
  Transmission Date: 20060218
  Serious: Yes (Hospitalization)
  Sender: FDA-Public Use
  Company Number: US-ROCHE-410971

PATIENT
  Age: 17 Year
  Sex: Female

DRUGS (14)
  1. KLONOPIN [Suspect]
     Indication: DEPRESSION
     Route: 065
     Dates: start: 20040625, end: 20050531
  2. KLONOPIN [Suspect]
     Dosage: OVERDOSE THERAPY.
     Route: 065
  3. LEXAPRO [Suspect]
     Indication: DEPRESSION
     Route: 048
     Dates: start: 20040625, end: 20040701
  4. LEXAPRO [Suspect]
     Route: 048
     Dates: start: 20040702, end: 20040708
  5. LEXAPRO [Suspect]
     Route: 048
     Dates: start: 20040709, end: 20040715
  6. LEXAPRO [Suspect]
     Route: 048
     Dates: start: 20040716, end: 20040722
  7. LEXAPRO [Suspect]
     Route: 048
     Dates: start: 20040723, end: 20041215
  8. LEXAPRO [Suspect]
     Route: 048
     Dates: start: 20041215, end: 20050115
  9. LEXAPRO [Suspect]
     Route: 048
     Dates: start: 20050115, end: 20050531
  10. ELAVIL [Suspect]
     Indication: DEPRESSION
     Route: 065
     Dates: end: 20050531
  11. RITALIN [Suspect]
     Indication: DEPRESSION
     Route: 065
     Dates: start: 20050215
  12. RITALIN [Suspect]
     Dosage: THE PATIENT WAS WEANED OFF THE DRUG.
     Route: 065
  13. ABILIFY [Suspect]
     Indication: DEPRESSION
     Route: 065
     Dates: start: 20050117, end: 20050531
  14. GEODON [Suspect]
     Indication: DEPRESSION
     Route: 048
     Dates: start: 20050430, end: 20050531

REACTIONS (7)
  - DEPRESSION [None]
  - HALLUCINATION [None]
  - OVERDOSE [None]
  - POST-TRAUMATIC STRESS DISORDER [None]
  - SELF INJURIOUS BEHAVIOUR [None]
  - SUICIDAL IDEATION [None]
  - SUICIDE ATTEMPT [None]
